FAERS Safety Report 8462885-1 (Version None)
Quarter: 2012Q2

REPORT INFORMATION
  Report Type: 
  Country: None (occurrence: None)
  Receive Date: 20120625
  Receipt Date: 20120619
  Transmission Date: 20120825
  Serious: Yes (Hospitalization, Other)
  Sender: FDA-Public Use
  Company Number: US-PFIZER INC-2012148174

PATIENT
  Sex: Female
  Weight: 99.32 kg

DRUGS (9)
  1. TRAMADOL [Concomitant]
     Indication: BONE PAIN
     Dosage: UNK
  2. PERCOCET [Concomitant]
     Indication: BONE PAIN
     Dosage: UNK
  3. NEURONTIN [Suspect]
     Indication: BACK PAIN
  4. TRAMADOL [Concomitant]
     Indication: BACK PAIN
  5. PERCOCET [Concomitant]
     Indication: BACK PAIN
  6. SOMA [Concomitant]
     Indication: BONE PAIN
     Dosage: UNK
  7. NEURONTIN [Suspect]
     Indication: INTERVERTEBRAL DISC PROTRUSION
  8. NEURONTIN [Suspect]
     Indication: NERVE INJURY
     Dosage: 600 MG (TWO 300MG CAPSULES), 3X/DAY
     Route: 048
     Dates: start: 20110601
  9. SOMA [Concomitant]
     Indication: BACK PAIN

REACTIONS (7)
  - ASTHMA [None]
  - COUGH [None]
  - MALAISE [None]
  - SINUSITIS [None]
  - BACK PAIN [None]
  - NASOPHARYNGITIS [None]
  - RHINORRHOEA [None]
